FAERS Safety Report 9914716 (Version 2)
Quarter: 2014Q1

REPORT INFORMATION
  Report Type: Spontaneous
  Country: US (occurrence: US)
  Receive Date: 20140220
  Receipt Date: 20140318
  Transmission Date: 20141002
  Serious: No
  Sender: FDA-Public Use
  Company Number: US-009507513-1402USA010027

PATIENT
  Sex: Female
  Weight: 72.56 kg

DRUGS (3)
  1. OXYTROL FOR WOMEN [Suspect]
     Indication: HYPERTONIC BLADDER
     Dosage: 1 DF, Q4D
     Route: 062
     Dates: start: 20131015, end: 20131225
  2. OXYTROL FOR WOMEN [Suspect]
     Indication: POLYURIA
     Dosage: 1 DF, Q4D
     Route: 062
     Dates: start: 20131015, end: 20131225
  3. OXYTROL FOR WOMEN [Suspect]
     Indication: URINARY INCONTINENCE

REACTIONS (7)
  - Hypersensitivity [Recovered/Resolved]
  - Swelling face [Recovered/Resolved]
  - Application site irritation [Recovered/Resolved]
  - Rash [Recovered/Resolved]
  - Pruritus [Recovered/Resolved]
  - Erythema [Recovered/Resolved]
  - Drug administered at inappropriate site [Unknown]
